FAERS Safety Report 7723692-8 (Version None)
Quarter: 2011Q3

REPORT INFORMATION
  Report Type: 
  Country: None (occurrence: None)
  Receive Date: 20110901
  Receipt Date: 20110822
  Transmission Date: 20111222
  Serious: Yes (Other)
  Sender: FDA-Public Use
  Company Number: US-AMGEN-USASP2010006382

PATIENT
  Age: 50 Year
  Sex: Female

DRUGS (3)
  1. ENBREL [Suspect]
     Indication: RHEUMATOID ARTHRITIS
     Dosage: 50 MG, QWK
     Dates: start: 20101001
  2. ENBREL [Suspect]
     Dosage: 50 MG, QWK
     Dates: start: 20100419, end: 20100701
  3. GOLIMUMAB [Concomitant]

REACTIONS (11)
  - JOINT SWELLING [None]
  - EYE INFLAMMATION [None]
  - RHEUMATOID ARTHRITIS [None]
  - CHEST PAIN [None]
  - URTICARIA [None]
  - INJECTION SITE ERYTHEMA [None]
  - SWELLING FACE [None]
  - PAIN IN JAW [None]
  - INJECTION SITE REACTION [None]
  - THYROID CANCER [None]
  - FATIGUE [None]
